FAERS Safety Report 20187067 (Version 1)
Quarter: 2021Q4

REPORT INFORMATION
  Report Type: Spontaneous
  Country: US (occurrence: None)
  Receive Date: 20211214
  Receipt Date: 20211214
  Transmission Date: 20220303
  Serious: No
  Sender: FDA-Public Use
  Company Number: None

PATIENT
  Age: 70 Year
  Sex: Female

DRUGS (1)
  1. TERIPARATIDE [Suspect]
     Active Substance: TERIPARATIDE
     Dosage: OTHER QUANTITY : 20 MCG;?FREQUENCY : DAILY;?
     Route: 058
     Dates: start: 20211025

REACTIONS (3)
  - Product storage error [None]
  - Product storage error [None]
  - Wrong technique in product usage process [None]

NARRATIVE: CASE EVENT DATE: 20211208
